FAERS Safety Report 5010504-9 (Version None)
Quarter: 2006Q2

REPORT INFORMATION
  Report Type: 
  Country: None (occurrence: None)
  Receive Date: 20060525
  Receipt Date: 20050518
  Transmission Date: 20061013
  Serious: No
  Sender: FDA-Public Use
  Company Number: US-GLAXOSMITHKLINE-A0559163A

PATIENT
  Age: 70 Year
  Sex: Male

DRUGS (1)
  1. BACTROBAN [Suspect]
     Indication: DRUG USE FOR UNKNOWN INDICATION
     Route: 061
     Dates: start: 20040101

REACTIONS (1)
  - DERMATITIS ALLERGIC [None]
